FAERS Safety Report 6518669-4 (Version None)
Quarter: 2009Q4

REPORT INFORMATION
  Report Type: 
  Country: None (occurrence: None)
  Receive Date: 20091228
  Receipt Date: 20091217
  Transmission Date: 20100525
  Serious: Yes (Death)
  Sender: FDA-Public Use
  Company Number: US-ROCHE-675242

PATIENT
  Sex: Female
  Weight: 90.7 kg

DRUGS (1)
  1. CAPECITABINE [Suspect]
     Indication: DRUG USE FOR UNKNOWN INDICATION
     Dosage: 3 DOSE FORM IN THE MORNING AND 2 DOSE FORM IN THE EVENING
     Route: 048
     Dates: start: 20091009, end: 20091214

REACTIONS (1)
  - DEATH [None]
